FAERS Safety Report 24928564 (Version 1)
Quarter: 2025Q1

REPORT INFORMATION
  Report Type: Spontaneous
  Country: US (occurrence: None)
  Receive Date: 20250204
  Receipt Date: 20250204
  Transmission Date: 20250408
  Serious: Yes (Death)
  Sender: FDA-CTU
  Company Number: None

PATIENT
  Age: 48 Year
  Sex: Female
  Weight: 101.6 kg

DRUGS (1)
  1. RITUXIMAB-ARRX [Suspect]
     Active Substance: RITUXIMAB-ARRX
     Indication: Multiple sclerosis
     Route: 042
     Dates: start: 20151103, end: 20250128

REACTIONS (1)
  - Death [None]

NARRATIVE: CASE EVENT DATE: 20250128
